FAERS Safety Report 26170091 (Version 1)
Quarter: 2025Q4

REPORT INFORMATION
  Report Type: Spontaneous
  Country: EU (occurrence: EU)
  Receive Date: 20251217
  Receipt Date: 20251217
  Transmission Date: 20260117
  Serious: Yes (Hospitalization, Other)
  Sender: NOVARTIS
  Company Number: None

PATIENT
  Age: 85 Year
  Sex: Female
  Weight: 65 kg

DRUGS (3)
  1. VALSARTAN AND HYDROCHLOROTHIAZIDE [Interacting]
     Active Substance: HYDROCHLOROTHIAZIDE\VALSARTAN
     Indication: Hypertension
     Dosage: 1 DOSAGE FORM, QD (COATED TABLET,1 TIME DAILY. 1 PIECE (S) ONCE PER DAY, ADDITIONAL INFORMATION: VAL
     Route: 048
     Dates: start: 20100101, end: 20140408
  2. FUROSEMIDE [Interacting]
     Active Substance: FUROSEMIDE
     Indication: Hypertension
     Dosage: 40 MG, QD (1 TIME DAILY. 1 PIECE(S) ONCE PER DAY, ADDITIONAL INFORMATION: FUROSEMIDE 40 MG)
     Route: 048
     Dates: start: 20140327
  3. DESMOPRESSIN [Interacting]
     Active Substance: DESMOPRESSIN
     Indication: Nocturia
     Dosage: 1 DOSAGE FORM, QD ( TIME DAILY. 1 PIECE(S) ONCE PER DAY, ADDITIONAL INFO: DESMOPRESSIN 120UG)
     Route: 060
     Dates: start: 20140330, end: 20140408

REACTIONS (2)
  - Hyponatraemia [Recovering/Resolving]
  - Drug interaction [Recovering/Resolving]

NARRATIVE: CASE EVENT DATE: 20140408
